FAERS Safety Report 5553160-3 (Version None)
Quarter: 2007Q4

REPORT INFORMATION
  Report Type: 
  Country: None (occurrence: None)
  Receive Date: 20071212
  Receipt Date: 20070708
  Transmission Date: 20080405
  Serious: No
  Sender: FDA-Public Use
  Company Number: US-AMGEN-KDL222514

PATIENT
  Sex: Female

DRUGS (3)
  1. ENBREL [Suspect]
     Indication: RHEUMATOID ARTHRITIS
     Route: 058
     Dates: start: 20070226, end: 20070506
  2. MOTRIN [Suspect]
     Dates: start: 20060901, end: 20070502
  3. METHOTREXATE [Concomitant]
     Route: 048
     Dates: start: 19990914

REACTIONS (14)
  - ABDOMINAL DISTENSION [None]
  - BLOOD ALKALINE PHOSPHATASE INCREASED [None]
  - BLOOD CHOLESTEROL INCREASED [None]
  - DIVERTICULUM [None]
  - DRY EYE [None]
  - ENDOMETRIAL HYPERPLASIA [None]
  - EYE PAIN [None]
  - HAEMATOCHEZIA [None]
  - HAEMORRHOIDAL HAEMORRHAGE [None]
  - METRORRHAGIA [None]
  - MONOCYTE COUNT DECREASED [None]
  - OESOPHAGITIS [None]
  - POSTMENOPAUSAL HAEMORRHAGE [None]
  - RECTAL HAEMORRHAGE [None]
